FAERS Safety Report 19275580 (Version 1)
Quarter: 2021Q2

REPORT INFORMATION
  Report Type: Spontaneous
  Country: US (occurrence: US)
  Receive Date: 20210519
  Receipt Date: 20210519
  Transmission Date: 20210717
  Serious: No
  Sender: FDA-Public Use
  Company Number: US-PFIZER INC-2021443475

PATIENT
  Age: 73 Year

DRUGS (1)
  1. ESTRING [Suspect]
     Active Substance: ESTRADIOL
     Indication: BLADDER DISORDER
     Dosage: UNK
     Route: 067

REACTIONS (2)
  - Therapeutic product effective for unapproved indication [Unknown]
  - Off label use [Unknown]
